FAERS Safety Report 8592901-8 (Version None)
Quarter: 2012Q3

REPORT INFORMATION
  Report Type: 
  Country: None (occurrence: None)
  Receive Date: 20120814
  Receipt Date: 20120806
  Transmission Date: 20120928
  Serious: Yes (Hospitalization)
  Sender: FDA-Public Use
  Company Number: DE-ROCHE-1099483

PATIENT
  Sex: Female

DRUGS (15)
  1. CALCIUM [Concomitant]
     Dates: start: 20000801
  2. PANTOPRAZOLE [Concomitant]
  3. MABTHERA [Suspect]
     Indication: RHEUMATOID ARTHRITIS
     Dates: start: 20090603
  4. IBUPROFEN [Concomitant]
     Dates: start: 20090901
  5. METHOTREXATE [Suspect]
     Route: 051
     Dates: start: 20080201, end: 20101201
  6. HUMIRA [Suspect]
     Indication: RHEUMATOID ARTHRITIS
     Dates: start: 20001227, end: 20060127
  7. BISOPROLOL [Concomitant]
     Dates: start: 20070710
  8. ASS (GERMANY) [Concomitant]
     Dates: start: 20100201
  9. ACTEMRA [Suspect]
     Indication: RHEUMATOID ARTHRITIS
     Dates: start: 20060609, end: 20090414
  10. METHOTREXATE [Suspect]
     Route: 051
     Dates: start: 20031001, end: 20080101
  11. VITAMIN D [Concomitant]
     Dates: start: 20060901
  12. METHOTREXATE [Suspect]
     Dates: start: 19990501, end: 20000101
  13. HUMIRA [Suspect]
     Dates: start: 20000621, end: 20000801
  14. METHOTREXATE [Suspect]
     Indication: RHEUMATOID ARTHRITIS
     Dates: start: 19950101, end: 19960101
  15. RAMIPRIL [Concomitant]
     Dates: start: 20100201

REACTIONS (1)
  - MALIGNANT MELANOMA STAGE I [None]
